FAERS Safety Report 7315690-3 (Version None)
Quarter: 2011Q1

REPORT INFORMATION
  Report Type: 
  Country: None (occurrence: None)
  Receive Date: 20110225
  Receipt Date: 20110225
  Transmission Date: 20110831
  Serious: Yes (Hospitalization, Other)
  Sender: FDA-Public Use
  Company Number: RO-ELI_LILLY_AND_COMPANY-RO201007003314

PATIENT
  Sex: Male
  Weight: 54 kg

DRUGS (4)
  1. PEMETREXED [Suspect]
     Dosage: 750 MG, UNKNOWN
     Route: 065
     Dates: start: 20100420, end: 20100601
  2. CISPLATIN [Suspect]
     Dosage: 110 MG, UNKNOWN
     Route: 065
     Dates: start: 20100420, end: 20100601
  3. KETOCONAZOLE [Concomitant]
     Dates: end: 20100630
  4. DIAZEPAM [Concomitant]
     Dosage: UNK, UNK
     Dates: start: 20100701, end: 20100723

REACTIONS (4)
  - DIARRHOEA [None]
  - BLOOD MAGNESIUM DECREASED [None]
  - HYPOCALCAEMIA [None]
  - ANAEMIA [None]
